FAERS Safety Report 8666109 (Version 2)
Quarter: 2012Q4

REPORT INFORMATION
  Report Type: 
  Country: US (occurrence: US)
  Receive Date: 20120716
  Receipt Date: 20120927
  Transmission Date: 20130627
  Serious: No
  Sender: FDA-Public Use
  Company Number: US-ASTRAZENECA-2012SE45186

PATIENT
  Age: 72 Year
  Sex: Female

DRUGS (3)
  1. SYMBICORT PMDI [Suspect]
     Dosage: FREQUENCY UNKNOWN
     Route: 055
  2. ALBUTEROL [Concomitant]
  3. ANTIBIOTICS [Concomitant]

REACTIONS (4)
  - Dyspnoea [Unknown]
  - Pulmonary function test decreased [Unknown]
  - Drug dose omission [Unknown]
  - Drug ineffective [Unknown]
